FAERS Safety Report 25919331 (Version 1)
Quarter: 2025Q4

REPORT INFORMATION
  Report Type: Spontaneous
  Country: EU (occurrence: EU)
  Receive Date: 20251014
  Receipt Date: 20251014
  Transmission Date: 20260119
  Serious: Yes (Life-Threatening)
  Sender: TEVA
  Company Number: None

PATIENT
  Age: 65 Year
  Sex: Male

DRUGS (4)
  1. OXALIPLATIN [Suspect]
     Active Substance: OXALIPLATIN
     Indication: Neoplasm malignant
     Dosage: TIME INTERVAL: CYCLICAL: 20 MINUTES OF OXALIPLATIN INJECTION OVER THE SCHEDULED 2 HOURS.?C1
     Route: 042
     Dates: start: 20250820, end: 20250820
  2. OXALIPLATIN [Suspect]
     Active Substance: OXALIPLATIN
     Indication: Neoplasm malignant
     Dosage: TIME INTERVAL: CYCLICAL: 20 MINUTES OF OXALIPLATIN INJECTION OVER THE SCHEDULED 2 HOURS.?C2
     Route: 042
     Dates: start: 20250903, end: 20250903
  3. ELIQUIS [Concomitant]
     Active Substance: APIXABAN
     Indication: Product used for unknown indication
     Route: 065
  4. AMLODIPINE [Concomitant]
     Active Substance: AMLODIPINE BESYLATE
     Indication: Product used for unknown indication
     Route: 065

REACTIONS (1)
  - Type I hypersensitivity [Recovered/Resolved]

NARRATIVE: CASE EVENT DATE: 20250903
